FAERS Safety Report 4340708-X (Version None)
Quarter: 2004Q2

REPORT INFORMATION
  Report Type: 
  Country: None (occurrence: None)
  Receive Date: 20040413
  Receipt Date: 20040331
  Transmission Date: 20050107
  Serious: Yes (Hospitalization)
  Sender: FDA-Public Use
  Company Number: 138581USA

PATIENT
  Sex: Female

DRUGS (4)
  1. CYTARABINE [Suspect]
     Indication: ACUTE MYELOID LEUKAEMIA
     Dosage: 2 GRAM BID INTRAVENOUS (NOS)
     Route: 042
     Dates: start: 20040129, end: 20040228
  2. FLUCONAZOLE [Suspect]
     Indication: ANTIFUNGAL PROPHYLAXIS
     Dosage: 400 MILLIGRAM QD ORAL
     Route: 048
     Dates: start: 20040301
  3. IDARUBICIN HCL [Suspect]
     Indication: ACUTE MYELOID LEUKAEMIA
     Dosage: 20 MILLIGRAM QD INTRAVENOUS (NOS)
     Route: 042
     Dates: start: 20040129, end: 20040226
  4. ACYCLOVIR [Concomitant]

REACTIONS (2)
  - FEBRILE NEUTROPENIA [None]
  - KLEBSIELLA BACTERAEMIA [None]
